FAERS Safety Report 8778468 (Version 2)
Quarter: 2012Q4

REPORT INFORMATION
  Report Type: 
  Country: FR (occurrence: FR)
  Receive Date: 20120912
  Receipt Date: 20120925
  Transmission Date: 20130627
  Serious: Yes (Hospitalization)
  Sender: FDA-Public Use
  Company Number: FR-GLAXOSMITHKLINE-B0828217A

PATIENT
  Age: 46 Year
  Sex: Male

DRUGS (5)
  1. VENTOLINE [Suspect]
     Indication: RESPIRATORY TRACT INFECTION
     Dosage: 200MCG Three times per day
     Route: 055
     Dates: start: 20120815, end: 20120819
  2. BECOTIDE NASAL [Suspect]
     Indication: RESPIRATORY TRACT INFECTION
     Dosage: 250MCG Twice per day
     Route: 055
     Dates: start: 20120815, end: 20120820
  3. TAVANIC [Suspect]
     Indication: RESPIRATORY TRACT INFECTION
     Dosage: 500MG Per day
     Route: 048
     Dates: start: 20120815, end: 20120820
  4. CLARITHROMYCINE [Concomitant]
     Indication: RESPIRATORY TRACT INFECTION
     Dates: start: 20120806, end: 20120814
  5. CELESTENE [Concomitant]
     Indication: RESPIRATORY TRACT INFECTION
     Dates: start: 20120806

REACTIONS (3)
  - Rash pustular [Recovered/Resolved]
  - Folliculitis [Recovered/Resolved]
  - Pyrexia [Recovered/Resolved]
